FAERS Safety Report 7158060-3 (Version None)
Quarter: 2010Q4

REPORT INFORMATION
  Report Type: 
  Country: None (occurrence: None)
  Receive Date: 20101214
  Receipt Date: 20100601
  Transmission Date: 20110411
  Serious: No
  Sender: FDA-Public Use
  Company Number: US-ASTRAZENECA-2010SE15497

PATIENT
  Age: 21398 Day
  Sex: Female
  Weight: 72.1 kg

DRUGS (15)
  1. CRESTOR [Suspect]
     Indication: HYPERLIPIDAEMIA
     Route: 048
     Dates: start: 20091223, end: 20100307
  2. ALTACE [Concomitant]
  3. HYZAAR [Concomitant]
  4. LEXAPRO [Concomitant]
  5. XANAX [Concomitant]
  6. ASPIRIN [Concomitant]
  7. CELEBREX [Concomitant]
  8. M.V.I. [Concomitant]
  9. CALCIUM [Concomitant]
  10. VIT D3 [Concomitant]
  11. FERRITIN [Concomitant]
  12. VIT C [Concomitant]
  13. WELCHOL [Concomitant]
  14. BENICAR [Concomitant]
  15. MAG OX OTC [Concomitant]

REACTIONS (3)
  - BLOOD CREATINE PHOSPHOKINASE INCREASED [None]
  - BLOOD POTASSIUM ABNORMAL [None]
  - MUSCLE SPASMS [None]
